FAERS Safety Report 18652455 (Version 5)
Quarter: 2021Q3

REPORT INFORMATION
  Report Type: Report from Study
  Country: None (occurrence: JP)
  Receive Date: 20201223
  Receipt Date: 20210806
  Transmission Date: 20211014
  Serious: No
  Sender: FDA-Public Use
  Company Number: JP-ABBVIE-20P-087-3682244-00

PATIENT
  Age: 60 Year
  Sex: Male
  Weight: 75.8 kg

DRUGS (15)
  1. MUCODYNE [Concomitant]
     Active Substance: CARBOCYSTEINE
     Indication: PHARYNGITIS
     Dosage: 1500 MILLIGRAM
     Route: 065
     Dates: start: 20191114, end: 20191119
  2. MUCODYNE [Concomitant]
     Active Substance: CARBOCYSTEINE
     Dosage: 1500 MILLIGRAM
     Route: 065
     Dates: start: 20191223, end: 20191230
  3. MEVALOTIN [Concomitant]
     Active Substance: PRAVASTATIN SODIUM
     Indication: PRODUCT USED FOR UNKNOWN INDICATION
     Dosage: 5 MILLIGRAM
     Route: 065
  4. AMLODIPINE [Concomitant]
     Active Substance: AMLODIPINE BESYLATE
     Indication: PRODUCT USED FOR UNKNOWN INDICATION
     Dosage: 5 MILLIGRAM
     Route: 065
  5. CHAMPIX [Concomitant]
     Active Substance: VARENICLINE TARTRATE
     Indication: NICOTINE DEPENDENCE
     Dosage: UNK
     Route: 065
     Dates: start: 20171017, end: 20171031
  6. MOHRUS L [Concomitant]
     Active Substance: KETOPROFEN
     Indication: ARTHRALGIA
     Dosage: 40 MILLIGRAM
     Route: 065
  7. CHAMPIX [Concomitant]
     Active Substance: VARENICLINE TARTRATE
     Dosage: 0.5 MILLIGRAM
     Route: 065
     Dates: start: 20171031, end: 20171102
  8. LEUPRORELIN [Suspect]
     Active Substance: LEUPROLIDE ACETATE
     Indication: BULBOSPINAL MUSCULAR ATROPHY CONGENITAL
     Dosage: 11.25 MILLIGRAM, Q3MONTHS
     Route: 058
     Dates: start: 20171030
  9. CHAMPIX [Concomitant]
     Active Substance: VARENICLINE TARTRATE
     Dosage: 1 MILLIGRAM
     Route: 065
     Dates: start: 20171103, end: 20171106
  10. TAMIFLU [Concomitant]
     Active Substance: OSELTAMIVIR PHOSPHATE
     Indication: PROPHYLAXIS
     Dosage: 75 MILLIGRAM
     Route: 065
     Dates: start: 20190202, end: 20190211
  11. TAMIFLU [Concomitant]
     Active Substance: OSELTAMIVIR PHOSPHATE
     Dosage: 75 MILLIGRAM
     Route: 065
     Dates: start: 20200221, end: 20200301
  12. TRANEXAMIC ACID. [Concomitant]
     Active Substance: TRANEXAMIC ACID
     Indication: PHARYNGITIS
     Dosage: 1500 MILLIGRAM
     Route: 065
     Dates: start: 20191114, end: 20191119
  13. XYZAL [Concomitant]
     Active Substance: LEVOCETIRIZINE DIHYDROCHLORIDE
     Indication: PHARYNGITIS
     Dosage: 5 MILLIGRAM
     Route: 065
     Dates: start: 20191114, end: 20191119
  14. CHAMPIX [Concomitant]
     Active Substance: VARENICLINE TARTRATE
     Dosage: 2 MILLIGRAM
     Route: 065
     Dates: start: 20171107, end: 20180114
  15. INAVIR [Concomitant]
     Indication: PRODUCT USED FOR UNKNOWN INDICATION
     Dosage: 40 MILLIGRAM
     Route: 065
     Dates: start: 20180416, end: 20180416

REACTIONS (8)
  - Injection site reaction [Recovered/Resolved]
  - Lipid metabolism disorder [Recovering/Resolving]
  - Injection site induration [Recovered/Resolved]
  - Rash [Not Recovered/Not Resolved]
  - Injection site erosion [Unknown]
  - Injection site induration [Unknown]
  - Injection site erythema [Unknown]
  - Injection site ulcer [Recovered/Resolved]

NARRATIVE: CASE EVENT DATE: 20180122
